FAERS Safety Report 16741377 (Version 2)
Quarter: 2019Q4

REPORT INFORMATION
  Report Type: Spontaneous
  Country: US (occurrence: US)
  Receive Date: 20190826
  Receipt Date: 20191120
  Transmission Date: 20200122
  Serious: Yes (Other)
  Sender: FDA-Public Use
  Company Number: US-PFIZER INC-2019360248

PATIENT
  Age: 4 Decade
  Sex: Female
  Weight: 129.2 kg

DRUGS (7)
  1. ADVIL [Suspect]
     Active Substance: IBUPROFEN
     Indication: PAIN
  2. ADVIL [Suspect]
     Active Substance: IBUPROFEN
     Indication: MYALGIA
  3. IRON [Concomitant]
     Active Substance: IRON
     Dosage: 45 MG, UNK
  4. VITAMINS NOS [Concomitant]
     Active Substance: VITAMINS
  5. MAGNESIUM [Concomitant]
     Active Substance: MAGNESIUM
     Dosage: 200 MG, UNK
  6. ADVIL [Suspect]
     Active Substance: IBUPROFEN
     Indication: LIGAMENT SPRAIN
  7. ADVIL [Suspect]
     Active Substance: IBUPROFEN
     Indication: MUSCLE STRAIN
     Dosage: 200 MG, AS NEEDED (LESS THAN 3X/DAY)

REACTIONS (2)
  - Menstrual disorder [Recovered/Resolved]
  - Thrombosis [Recovered/Resolved]
